FAERS Safety Report 18931204 (Version 5)
Quarter: 2021Q2

REPORT INFORMATION
  Report Type: Report from Study
  Country: KR (occurrence: KR)
  Receive Date: 20210224
  Receipt Date: 20210528
  Transmission Date: 20210717
  Serious: Yes (Death, Life-Threatening, Hospitalization, Other)
  Sender: FDA-Public Use
  Company Number: KR-CELLTRION INC.-2021KR002115

PATIENT

DRUGS (14)
  1. NEXIUM I.V. [Concomitant]
     Active Substance: ESOMEPRAZOLE SODIUM
     Dosage: 40 MG, QD
     Route: 042
     Dates: start: 20210211, end: 20210326
  2. TRUXIMA [Suspect]
     Active Substance: RITUXIMAB-ABBS
     Indication: DIFFUSE LARGE B-CELL LYMPHOMA
     Dosage: 375 MG/M2, Q4 WEEKS (100 MG)
     Route: 042
     Dates: start: 20210128
  3. INVANZ [Concomitant]
     Active Substance: ERTAPENEM SODIUM
     Indication: ANTIBIOTIC THERAPY
     Dosage: 1 G QD
     Route: 042
     Dates: start: 20210216, end: 20210303
  4. METRONIDAZOLE. [Concomitant]
     Active Substance: METRONIDAZOLE
     Indication: ANTIBIOTIC THERAPY
     Dosage: 500 MG/100ML, QD
     Route: 042
     Dates: start: 20210217, end: 20210326
  5. KERAL [Concomitant]
     Active Substance: DEXKETOPROFEN TROMETAMOL
     Indication: HAEMATURIA
     Dosage: 50 MG, QD
     Route: 042
     Dates: start: 20200420, end: 20210217
  6. COLIS [COLISTIMETHATE SODIUM] [Concomitant]
     Indication: HAEMATURIA
     Dosage: 150 MG, QD
     Route: 042
     Dates: start: 20210211, end: 20210325
  7. TRUXIMA [Suspect]
     Active Substance: RITUXIMAB-ABBS
     Dosage: 375 MG/M2, Q4 WEEKS (500 MG)
     Route: 042
     Dates: start: 20210128
  8. TRANEXAMIC ACID. [Concomitant]
     Active Substance: TRANEXAMIC ACID
     Indication: HAEMATURIA
     Dosage: 500 MG/5 ML/AMP, QD
     Route: 042
     Dates: start: 20210211, end: 20210326
  9. PENBREX [AMPICILLIN] [Concomitant]
     Indication: ANTIBIOTIC THERAPY
     Dosage: 500 MG, QD
     Route: 042
     Dates: start: 20210213, end: 20210303
  10. LANSTON [Concomitant]
     Active Substance: LANSOPRAZOLE
     Dosage: 30 MG, QD
     Route: 048
     Dates: start: 20210211, end: 20210315
  11. ACETPHEN PREMIX [Concomitant]
     Indication: ANALGESIC THERAPY
     Dosage: 1G/100 ML, QD
     Route: 042
     Dates: start: 20210211, end: 20210325
  12. LENALIDOMIDE [Concomitant]
     Active Substance: LENALIDOMIDE
     Dosage: 20 MG/DAY
  13. DENOGAN [Concomitant]
     Active Substance: PROPACETAMOL HYDROCHLORIDE
     Indication: ANALGESIC THERAPY
     Dosage: 1 G, QD
     Route: 042
     Dates: start: 20210211, end: 20210315
  14. CITOPCIN [CIPROFLOXACIN HYDROCHLORIDE] [Concomitant]
     Indication: ANTIBIOTIC THERAPY
     Dosage: 400MG/200 ML/ BAG, QD
     Route: 042
     Dates: start: 20210211, end: 20210212

REACTIONS (10)
  - Condition aggravated [Fatal]
  - Thrombocytopenia [Not Recovered/Not Resolved]
  - Respiratory arrest [Fatal]
  - Condition aggravated [Unknown]
  - Septic shock [Fatal]
  - Peritonitis [Fatal]
  - Cystitis [Fatal]
  - General physical health deterioration [Unknown]
  - Diffuse large B-cell lymphoma [Unknown]
  - Urinary bladder rupture [Fatal]

NARRATIVE: CASE EVENT DATE: 20210211
